FAERS Safety Report 5042331-0 (Version None)
Quarter: 2006Q3

REPORT INFORMATION
  Report Type: 
  Country: None (occurrence: None)
  Receive Date: 20060705
  Receipt Date: 20060623
  Transmission Date: 20061208
  Serious: Yes (Hospitalization)
  Sender: FDA-Public Use
  Company Number: CH-JNJFOC-20060605194

PATIENT
  Sex: Female

DRUGS (14)
  1. TYLENOL (CAPLET) [Suspect]
     Route: 048
  2. TYLENOL (CAPLET) [Suspect]
     Indication: HEADACHE
     Route: 048
  3. HERCEPTIN [Suspect]
     Indication: DRUG USE FOR UNKNOWN INDICATION
     Route: 041
  4. COMILORID [Suspect]
     Indication: ESSENTIAL HYPERTENSION
     Route: 048
  5. PARACETAMOL [Suspect]
     Indication: HEADACHE
     Route: 048
  6. ASPIRIN [Suspect]
     Indication: HEADACHE
     Route: 048
  7. PRETUVAL [Suspect]
     Indication: HEADACHE
     Route: 048
  8. ARIMIDEX [Concomitant]
     Indication: DRUG USE FOR UNKNOWN INDICATION
     Route: 048
  9. NAVOBAN [Concomitant]
     Route: 048
  10. DEXAMETHASONE [Concomitant]
     Route: 048
  11. PASPERTIN [Concomitant]
     Route: 048
  12. CARVEDILOL [Concomitant]
     Route: 048
  13. CALPEROS D3 [Concomitant]
     Route: 048
  14. ACTONEL [Concomitant]
     Route: 048

REACTIONS (1)
  - RENAL IMPAIRMENT [None]
